FAERS Safety Report 23152194 (Version 1)
Quarter: 2023Q4

REPORT INFORMATION
  Report Type: Report from Study
  Country: NL (occurrence: NL)
  Receive Date: 20231107
  Receipt Date: 20231107
  Transmission Date: 20240109
  Serious: Yes (Hospitalization)
  Sender: FDA-Public Use
  Company Number: NL-AstraZeneca-2023A247602

PATIENT
  Age: 5 Month
  Sex: Male
  Weight: 6.8 kg

DRUGS (1)
  1. SYNAGIS [Suspect]
     Active Substance: PALIVIZUMAB
     Indication: Premature baby
     Dosage: 15 MG/KG, MONTHLY
     Route: 030
     Dates: start: 20230908

REACTIONS (2)
  - Dyspnoea [Not Recovered/Not Resolved]
  - Subglottic laryngitis [Not Recovered/Not Resolved]

NARRATIVE: CASE EVENT DATE: 20231001
